FAERS Safety Report 8721319 (Version 2)
Quarter: 2012Q4

REPORT INFORMATION
  Report Type: 
  Country: US (occurrence: US)
  Receive Date: 20120813
  Receipt Date: 20121106
  Transmission Date: 20130627
  Serious: Yes (Death, Hospitalization)
  Sender: FDA-Public Use
  Company Number: US-BAXTER-2012BAX012855

PATIENT
  Age: 46 Year
  Sex: Female
  Weight: 98.06 kg

DRUGS (11)
  1. GAMMAGARD LIQUID [Suspect]
     Indication: IMMUNE-MEDIATED THROMBOCYTOPENIC PURPURA
     Route: 065
  2. GAMMAGARD LIQUID [Suspect]
     Indication: INTENTIONAL USE FOR UNLABELED INDICATION
     Route: 042
     Dates: start: 20120719, end: 20120719
  3. OGEN [Concomitant]
     Indication: DRUG USE FOR UNKNOWN INDICATION
     Route: 048
     Dates: start: 201111
  4. DELTASONE [Concomitant]
     Indication: DRUG USE FOR UNKNOWN INDICATION
     Route: 048
     Dates: start: 201101
  5. INDERAL LA [Concomitant]
     Indication: DRUG USE FOR UNKNOWN INDICATION
     Route: 048
  6. IMITREX [Concomitant]
     Indication: HEADACHE
     Route: 048
  7. RESTORIL [Concomitant]
     Indication: SLEEP DISORDER
     Route: 048
  8. AMBIEN [Concomitant]
     Indication: SLEEP DISORDER
     Route: 048
  9. COUMADIN [Concomitant]
     Indication: DRUG USE FOR UNKNOWN INDICATION
     Route: 048
  10. PHENERGAN [Concomitant]
     Indication: DRUG USE FOR UNKNOWN INDICATION
     Route: 042
  11. EPINEPHRINE [Concomitant]
     Indication: DRUG USE FOR UNKNOWN INDICATION
     Route: 042

REACTIONS (8)
  - Death [Fatal]
  - Anaphylactic reaction [Unknown]
  - Dyspnoea [Unknown]
  - Haemorrhage [Unknown]
  - Chest discomfort [Unknown]
  - Chills [Unknown]
  - Nausea [Unknown]
  - Cyanosis [Unknown]
